FAERS Safety Report 9593571 (Version 3)
Quarter: 2014Q1

REPORT INFORMATION
  Report Type: Report from Study
  Country: JP (occurrence: JP)
  Receive Date: 20131004
  Receipt Date: 20140108
  Transmission Date: 20141002
  Serious: Yes (Death)
  Sender: FDA-Public Use
  Company Number: JP-JNJFOC-20130915408

PATIENT
  Age: 74 Year
  Sex: Female
  Weight: 34 kg

DRUGS (12)
  1. ONEDURO [Suspect]
     Indication: CANCER PAIN
     Route: 062
     Dates: start: 20120203, end: 20120204
  2. ONEDURO [Suspect]
     Indication: CANCER PAIN
     Route: 062
     Dates: start: 20120127, end: 20120203
  3. OXINORM (OXYCODONE HYDROCHLORIDE) [Concomitant]
     Indication: CANCER PAIN
     Route: 048
     Dates: start: 20120205, end: 20120205
  4. OXINORM (OXYCODONE HYDROCHLORIDE) [Concomitant]
     Indication: CANCER PAIN
     Route: 048
     Dates: start: 20120203, end: 20120204
  5. OXINORM (OXYCODONE HYDROCHLORIDE) [Concomitant]
     Indication: CANCER PAIN
     Route: 048
     Dates: start: 20120130, end: 20120130
  6. OXINORM (OXYCODONE HYDROCHLORIDE) [Concomitant]
     Indication: CANCER PAIN
     Route: 048
     Dates: start: 20120201, end: 20120201
  7. OXINORM (OXYCODONE HYDROCHLORIDE) [Concomitant]
     Indication: CANCER PAIN
     Route: 048
     Dates: start: 20120202, end: 20120202
  8. ALLEGRA [Concomitant]
     Indication: RHINITIS ALLERGIC
     Route: 048
     Dates: end: 20120205
  9. CEREKINON [Concomitant]
     Indication: GASTRIC ULCER
     Route: 048
     Dates: end: 20120205
  10. AMLODIPINE [Concomitant]
     Indication: HYPERTENSION
     Route: 048
     Dates: end: 20120205
  11. TAKEPRON [Concomitant]
     Indication: GASTRIC ULCER
     Route: 048
     Dates: end: 20120205
  12. MELOXICAM [Concomitant]
     Indication: CANCER PAIN
     Route: 048
     Dates: start: 20120123, end: 20120205

REACTIONS (3)
  - Tumour rupture [Fatal]
  - Drug intolerance [Unknown]
  - Pain [Unknown]
